FAERS Safety Report 25817152 (Version 1)
Quarter: 2025Q3

REPORT INFORMATION
  Report Type: Spontaneous
  Country: CN (occurrence: CN)
  Receive Date: 20250918
  Receipt Date: 20250918
  Transmission Date: 20251021
  Serious: Yes (Hospitalization)
  Sender: Haleon PLC
  Company Number: CN-HALEON-2263173

PATIENT
  Age: 24 Year
  Sex: Female
  Weight: 46 kg

DRUGS (5)
  1. IBUPROFEN [Suspect]
     Active Substance: IBUPROFEN
     Indication: Depressed mood
     Dosage: SUSTAINED-RELEASE CAPSULES
     Route: 048
     Dates: start: 20250901, end: 20250901
  2. ASTEMIZOLE [Suspect]
     Active Substance: ASTEMIZOLE
     Indication: Depressed mood
     Route: 048
     Dates: start: 20250901, end: 20250901
  3. ACETAMINOPHEN\AMANTADINE\BOS TAURUS GALLSTONE\CAFFEINE\CHLORPHENIRAMIN [Suspect]
     Active Substance: ACETAMINOPHEN\AMANTADINE\BOS TAURUS GALLSTONE\CAFFEINE\CHLORPHENIRAMINE
     Indication: Depressed mood
     Route: 048
     Dates: start: 20250901, end: 20250901
  4. CETIRIZINE HYDROCHLORIDE [Suspect]
     Active Substance: CETIRIZINE HYDROCHLORIDE
     Indication: Depressed mood
     Route: 048
     Dates: start: 20250901, end: 20250901
  5. MONTELUKAST SODIUM [Suspect]
     Active Substance: MONTELUKAST SODIUM
     Indication: Depressed mood
     Route: 048
     Dates: start: 20250901, end: 20250901

REACTIONS (8)
  - Tachypnoea [Recovering/Resolving]
  - Abdominal pain upper [Recovering/Resolving]
  - Intentional overdose [Unknown]
  - Chest discomfort [Recovering/Resolving]
  - Headache [Recovering/Resolving]
  - Dizziness [Recovering/Resolving]
  - Nausea [Recovering/Resolving]
  - Product use in unapproved indication [Unknown]

NARRATIVE: CASE EVENT DATE: 20250901
